FAERS Safety Report 8133817 (Version 3)
Quarter: 2012Q4

REPORT INFORMATION
  Report Type: 
  Country: US (occurrence: US)
  Receive Date: 20110913
  Receipt Date: 20121031
  Transmission Date: 20130627
  Serious: Yes (Death, Hospitalization)
  Sender: FDA-Public Use
  Company Number: US-GLAXOSMITHKLINE-A0882106A

PATIENT
  Age: 69 Year
  Sex: Female

DRUGS (1)
  1. AVANDIA [Suspect]
     Indication: TYPE 2 DIABETES MELLITUS
     Dosage: 8MG Twice per day
     Route: 048
     Dates: start: 1999, end: 2004

REACTIONS (6)
  - Acute myocardial infarction [Fatal]
  - Cardiac failure [Fatal]
  - Cardiac arrest [Fatal]
  - Cerebrovascular accident [Unknown]
  - Supraventricular tachycardia [Unknown]
  - Carotid artery stenosis [Unknown]
